FAERS Safety Report 22114566 (Version 1)
Quarter: 2023Q1

REPORT INFORMATION
  Report Type: Spontaneous
  Country: None (occurrence: ES)
  Receive Date: 20230320
  Receipt Date: 20230320
  Transmission Date: 20230418
  Serious: Yes (Other)
  Sender: FDA-Public Use
  Company Number: ES-B.Braun Medical Inc.-2139261

PATIENT
  Age: 48 Year
  Sex: Female

DRUGS (2)
  1. ACETAMINOPHEN [Suspect]
     Active Substance: ACETAMINOPHEN
     Indication: Cellulitis
  2. AMOXICILLIN [Suspect]
     Active Substance: AMOXICILLIN

REACTIONS (8)
  - Diarrhoea [Unknown]
  - Urticaria [Unknown]
  - Pruritus [Unknown]
  - Dizziness [Unknown]
  - Chest discomfort [Unknown]
  - Palpitations [Unknown]
  - Face oedema [Unknown]
  - Hyperhidrosis [Unknown]
